FAERS Safety Report 6108463-0 (Version None)
Quarter: 2009Q1

REPORT INFORMATION
  Report Type: 
  Country: None (occurrence: None)
  Receive Date: 20090309
  Receipt Date: 20090304
  Transmission Date: 20090719
  Serious: Yes (Life-Threatening, Hospitalization)
  Sender: FDA-Public Use
  Company Number: GB-B.I. PHARMACEUTICALS,INC./RIDGEFIELD-2009-UK-00111UK

PATIENT
  Age: 60 Year
  Sex: Female

DRUGS (6)
  1. TIOTROPIUM (00015/0190/A) [Suspect]
     Indication: CHRONIC OBSTRUCTIVE PULMONARY DISEASE
     Dosage: 18MCG
     Route: 055
     Dates: start: 20060921
  2. SALBUTAMOL [Concomitant]
     Indication: CHRONIC OBSTRUCTIVE PULMONARY DISEASE
     Dosage: 200MCG
     Route: 055
     Dates: start: 20060921
  3. BECLOMETHASONE DIPROPIONATE [Concomitant]
     Indication: CHRONIC OBSTRUCTIVE PULMONARY DISEASE
     Dosage: 200MCG
     Route: 055
     Dates: start: 20060624
  4. PERINDOPRIL ERBUMINE [Concomitant]
     Indication: HYPERTENSION
     Dosage: 2MG
     Route: 048
     Dates: start: 20060301, end: 20080601
  5. AMLODIPINE [Concomitant]
     Indication: HYPERTENSION
     Dosage: 5MG
     Route: 048
  6. VALSARTAN [Concomitant]
     Indication: HYPERTENSION
     Dosage: 80MG
     Route: 048
     Dates: start: 20080601

REACTIONS (6)
  - DYSPNOEA [None]
  - JOINT SWELLING [None]
  - LOWER RESPIRATORY TRACT INFECTION [None]
  - OXYGEN SATURATION DECREASED [None]
  - RENAL FAILURE [None]
  - RESPIRATORY FAILURE [None]
